FAERS Safety Report 5324738-7 (Version None)
Quarter: 2007Q2

REPORT INFORMATION
  Report Type: 
  Country: None (occurrence: None)
  Receive Date: 20070220
  Receipt Date: 20061220
  Transmission Date: 20071010
  Serious: No
  Sender: FDA-Public Use
  Company Number: WAES 0612USA03352

PATIENT
  Age: 89 Year
  Sex: Female

DRUGS (6)
  1. JANUVIA [Suspect]
     Indication: DIABETES MELLITUS
     Dosage: 50 MG/DAILY/PO
     Route: 048
     Dates: start: 20061101, end: 20061220
  2. ACTOS [Concomitant]
  3. LIPITOR [Concomitant]
  4. LOTREL [Concomitant]
  5. CLOPIDOGREL BISULFATE [Concomitant]
  6. GLIPIZIDE [Concomitant]

REACTIONS (3)
  - DRY SKIN [None]
  - ERYTHEMA [None]
  - ORAL MUCOSAL BLISTERING [None]
